FAERS Safety Report 8337265-X (Version None)
Quarter: 2012Q2

REPORT INFORMATION
  Report Type: 
  Country: None (occurrence: None)
  Receive Date: 20120504
  Receipt Date: 20120424
  Transmission Date: 20120825
  Serious: Yes (Other)
  Sender: FDA-Public Use
  Company Number: US-JNJFOC-20080301358

PATIENT
  Sex: Male

DRUGS (5)
  1. PAIN MEDICATION [Concomitant]
  2. LYRICA [Concomitant]
  3. REMICADE [Suspect]
     Indication: ANKYLOSING SPONDYLITIS
     Dosage: DOSE: EVERY 6-7 WEEKS
     Route: 042
     Dates: start: 20080101
  4. REMICADE [Suspect]
     Indication: CROHN'S DISEASE
     Dosage: DOSE: EVERY 6-7 WEEKS
     Route: 042
     Dates: start: 20080101
  5. PREDNISONE TAB [Concomitant]

REACTIONS (1)
  - EPIDURAL LIPOMATOSIS [None]
